FAERS Safety Report 25282774 (Version 1)
Quarter: 2025Q2

REPORT INFORMATION
  Report Type: Spontaneous
  Country: US (occurrence: None)
  Receive Date: 20250507
  Receipt Date: 20250507
  Transmission Date: 20250716
  Serious: Yes (Hospitalization)
  Sender: FDA-CTU
  Company Number: None

PATIENT
  Sex: Male

DRUGS (11)
  1. LENALIDOMIDE [Suspect]
     Active Substance: LENALIDOMIDE
     Indication: Haemolytic anaemia
     Route: 050
     Dates: start: 20250507
  2. ACETAMINOPHE [Concomitant]
  3. AMIODARONE [Concomitant]
     Active Substance: AMIODARONE
  4. DESONIDE [Concomitant]
     Active Substance: DESONIDE
  5. A-HYDROCORT [Concomitant]
     Active Substance: HYDROCORTISONE SODIUM SUCCINATE
  6. LISINOPRIL [Concomitant]
     Active Substance: LISINOPRIL
  7. METOPROL SUC [Concomitant]
  8. MILK OF MAGN [Concomitant]
  9. ONDANSETRON [Concomitant]
     Active Substance: ONDANSETRON
  10. PREDNISONE [Concomitant]
     Active Substance: PREDNISONE
  11. SIMVASTATIN [Concomitant]
     Active Substance: SIMVASTATIN

REACTIONS (3)
  - Hypotension [None]
  - Atrial fibrillation [None]
  - Pancytopenia [None]
